FAERS Safety Report 4850104-4 (Version None)
Quarter: 2005Q4

REPORT INFORMATION
  Report Type: 
  Country: None (occurrence: None)
  Receive Date: 20051107
  Receipt Date: 20050808
  Transmission Date: 20060501
  Serious: Yes (Other)
  Sender: FDA-Public Use
  Company Number: PHEH2005US08761

PATIENT
  Sex: Female

DRUGS (5)
  1. ESTROGEN (ESTROGEN) [Suspect]
     Indication: MENOPAUSAL SYMPTOMS
     Dates: start: 19860101, end: 20010101
  2. PREMARIN [Suspect]
     Indication: MENOPAUSAL SYMPTOMS
     Dates: start: 19860101, end: 20010101
  3. PROVERA [Suspect]
     Indication: MENOPAUSAL SYMPTOMS
     Dates: start: 19860101, end: 20010101
  4. PREMPRO [Suspect]
     Indication: MENOPAUSAL SYMPTOMS
     Dates: start: 19860101, end: 20010101
  5. PROGESTERONE [Suspect]
     Indication: MENOPAUSAL SYMPTOMS
     Dates: start: 19860101, end: 20010101

REACTIONS (9)
  - ANHEDONIA [None]
  - ANXIETY [None]
  - BIOPSY BREAST ABNORMAL [None]
  - BREAST CANCER [None]
  - DISABILITY [None]
  - INJURY [None]
  - MALIGNANT BREAST LUMP REMOVAL [None]
  - PAIN [None]
  - SCAR [None]
